FAERS Safety Report 7539523 (Version 5)
Quarter: 2013Q1

REPORT INFORMATION
  Report Type: Spontaneous
  Country: US (occurrence: US)
  Receive Date: 20100813
  Receipt Date: 20130225
  Transmission Date: 20140127
  Serious: Yes (Hospitalization, Other)
  Sender: FDA-Public Use
  Company Number: US-JNJFOC-20100705541

PATIENT
  Sex: Male

DRUGS (3)
  1. LEVAQUIN [Suspect]
     Indication: PROPHYLAXIS
     Route: 048
     Dates: start: 200806
  2. LEVAQUIN [Suspect]
     Indication: INJURY
     Route: 048
     Dates: start: 200806
  3. CIPRO [Suspect]
     Indication: URETHRITIS
     Route: 065

REACTIONS (5)
  - Rotator cuff syndrome [Unknown]
  - Joint injury [Unknown]
  - Tendon rupture [Unknown]
  - Arthropathy [Unknown]
  - Rotator cuff syndrome [Unknown]
